FAERS Safety Report 25720862 (Version 1)
Quarter: 2025Q3

REPORT INFORMATION
  Report Type: Report from Study
  Country: CA (occurrence: CA)
  Receive Date: 20250825
  Receipt Date: 20250825
  Transmission Date: 20251021
  Serious: Yes (Other)
  Sender: AMARIN
  Company Number: CA-Amarin Pharma  Inc-2025AMR000555

PATIENT
  Age: 59 Year
  Sex: Male

DRUGS (1)
  1. VASCEPA [Suspect]
     Active Substance: ICOSAPENT ETHYL
     Indication: Cardiovascular disorder
     Dates: start: 20240704

REACTIONS (2)
  - Arterial stent insertion [Unknown]
  - Eructation [Unknown]

NARRATIVE: CASE EVENT DATE: 20241101
